FAERS Safety Report 22354551 (Version 1)
Quarter: 2023Q2

REPORT INFORMATION
  Report Type: Report from Study
  Country: GB (occurrence: GB)
  Receive Date: 20230523
  Receipt Date: 20230523
  Transmission Date: 20230721
  Serious: Yes (Other)
  Sender: FDA-Public Use
  Company Number: GB-KOREA IPSEN Pharma-2022-32850

PATIENT
  Age: 39 Year
  Sex: Female

DRUGS (2)
  1. LANREOTIDE ACETATE [Suspect]
     Active Substance: LANREOTIDE ACETATE
     Indication: Neuroendocrine tumour
     Dosage: 120MG/0.5ML SOLUTION
     Route: 058
  2. LANREOTIDE ACETATE [Suspect]
     Active Substance: LANREOTIDE ACETATE
     Dosage: 120MG/0.5ML
     Route: 058
     Dates: start: 20221027

REACTIONS (12)
  - Neuropathy peripheral [Unknown]
  - Diabetes mellitus [Unknown]
  - Musculoskeletal disorder [Unknown]
  - Arthritis [Unknown]
  - Feeling abnormal [Unknown]
  - Joint range of motion decreased [Unknown]
  - Hypoaesthesia [Unknown]
  - Flushing [Unknown]
  - Malaise [Unknown]
  - Fatigue [Unknown]
  - Blood glucose increased [Unknown]
  - Hot flush [Unknown]
